FAERS Safety Report 7760756-7 (Version None)
Quarter: 2011Q3

REPORT INFORMATION
  Report Type: 
  Country: None (occurrence: None)
  Receive Date: 20110919
  Receipt Date: 20110905
  Transmission Date: 20111222
  Serious: Yes (Death, Other)
  Sender: FDA-Public Use
  Company Number: GB-BAYER-2011-081353

PATIENT
  Age: 62 Year
  Sex: Male
  Weight: 59 kg

DRUGS (7)
  1. ACETYLSALICYLIC ACID SRT [Suspect]
     Indication: ACUTE CORONARY SYNDROME
     Dosage: UNK
     Route: 048
     Dates: start: 20110826, end: 20110830
  2. CLOPIDOGREL [Suspect]
     Indication: ACUTE CORONARY SYNDROME
     Dosage: UNK
     Route: 048
     Dates: start: 20110826, end: 20110830
  3. PRASUGREL [Suspect]
     Dosage: 60 MG, UNK
     Route: 048
     Dates: start: 20110830, end: 20110830
  4. ENOXAPARIN [Suspect]
     Indication: ACUTE CORONARY SYNDROME
     Dosage: 60 MG, BID
     Route: 058
     Dates: start: 20110826, end: 20110830
  5. BECLOMETHASONE DIPROPIONATE [Concomitant]
     Route: 055
  6. BIVALIRUDIN [Suspect]
     Dosage: UNK
     Route: 042
     Dates: start: 20110830, end: 20110830
  7. ALBUTEROL [Concomitant]
     Route: 055

REACTIONS (2)
  - COMA SCALE ABNORMAL [None]
  - HAEMORRHAGE INTRACRANIAL [None]
